FAERS Safety Report 23642732 (Version 2)
Quarter: 2024Q1

REPORT INFORMATION
  Report Type: Report from Study
  Country: TR (occurrence: TR)
  Receive Date: 20240318
  Receipt Date: 20240319
  Transmission Date: 20240409
  Serious: Yes (Hospitalization, Other)
  Sender: FDA-Public Use
  Company Number: TR-ABBVIE-5680284

PATIENT
  Age: 68 Year
  Sex: Male
  Weight: 60 kg

DRUGS (3)
  1. CARBIDOPA\LEVODOPA [Suspect]
     Active Substance: CARBIDOPA\LEVODOPA
     Indication: Parkinson^s disease
     Dosage: MORNING DOSE (ML): 7.00 CONTINUOUS DOSE (ML): 5.30 EXTRA DOSE (ML): 2.00
     Route: 050
     Dates: start: 20210823, end: 20240311
  2. CARBIDOPA\LEVODOPA [Suspect]
     Active Substance: CARBIDOPA\LEVODOPA
     Dosage: MORNING DOSE (ML): 7.00 CONTINUOUS DOSE (ML): 5.30 EXTRA DOSE (ML): 2.00
     Route: 050
     Dates: start: 20240315
  3. ASPIRIN [Concomitant]
     Active Substance: ASPIRIN
     Indication: Anticoagulant therapy
     Dosage: 200 MILLIGRAM?ACEYTLSALICYLIC ACID, FORM STRENGTH: 100 MILLIGRAM
     Route: 048
     Dates: start: 20240311

REACTIONS (3)
  - Myocardial infarction [Recovered/Resolved]
  - Fall [Recovered/Resolved]
  - Device dislocation [Recovered/Resolved]

NARRATIVE: CASE EVENT DATE: 20240310
